FAERS Safety Report 9466287 (Version 1)
Quarter: 2013Q3

REPORT INFORMATION
  Report Type: Spontaneous
  Country: FR (occurrence: FR)
  Receive Date: 20130820
  Receipt Date: 20130820
  Transmission Date: 20140515
  Serious: Yes (Hospitalization)
  Sender: FDA-Public Use
  Company Number: PHHY2013FR086569

PATIENT
  Age: 96 Year
  Sex: Female

DRUGS (4)
  1. MINI-SINTROM [Suspect]
     Dosage: UNK UKN, UNK
     Route: 048
  2. PARACETAMOL [Interacting]
     Dosage: UNK UKN, UNK
     Route: 048
  3. CORDARONE [Interacting]
     Dosage: UNK UKN, UNK
     Route: 048
  4. SOLUPRED [Interacting]
     Dosage: UNK UKN, UNK
     Route: 048

REACTIONS (3)
  - Rectal haemorrhage [Recovered/Resolved]
  - International normalised ratio increased [Recovered/Resolved]
  - Drug interaction [Unknown]
